FAERS Safety Report 10337750 (Version 1)
Quarter: 2014Q3

REPORT INFORMATION
  Report Type: Spontaneous
  Country: US (occurrence: US)
  Receive Date: 20140724
  Receipt Date: 20140724
  Transmission Date: 20150326
  Serious: No
  Sender: FDA-Public Use
  Company Number: US-UNITED THERAPEUTICS-UTC-045506

PATIENT
  Age: 65 Year
  Sex: Female
  Weight: 75.29 kg

DRUGS (3)
  1. REVATIO [Concomitant]
     Active Substance: SILDENAFIL CITRATE
  2. REMODULIN [Suspect]
     Active Substance: TREPROSTINIL
     Dosage: 0.045 UG/KG/MIN
     Route: 041
     Dates: start: 20130509
  3. WARFARIN [Concomitant]
     Active Substance: WARFARIN

REACTIONS (3)
  - Joint injury [Unknown]
  - Fall [Unknown]
  - Burning sensation [Unknown]

NARRATIVE: CASE EVENT DATE: 20140226
